FAERS Safety Report 6484840-3 (Version None)
Quarter: 2009Q4

REPORT INFORMATION
  Report Type: 
  Country: None (occurrence: None)
  Receive Date: 20091209
  Receipt Date: 20091204
  Transmission Date: 20100525
  Serious: Yes (Other)
  Sender: FDA-Public Use
  Company Number: US-AMGEN-US336987

PATIENT
  Sex: Male
  Weight: 70.7 kg

DRUGS (2)
  1. NPLATE [Suspect]
     Indication: IDIOPATHIC THROMBOCYTOPENIC PURPURA
     Dates: start: 20080918
  2. MULTI-VITAMINS [Concomitant]

REACTIONS (2)
  - PLATELET COUNT DECREASED [None]
  - THROMBOCYTOSIS [None]
